FAERS Safety Report 10206414 (Version 1)
Quarter: 2014Q2

REPORT INFORMATION
  Report Type: Spontaneous
  Country: US (occurrence: US)
  Receive Date: 20140530
  Receipt Date: 20140530
  Transmission Date: 20141212
  Serious: Yes (Other)
  Sender: FDA-Public Use
  Company Number: US-TEVA-484510USA

PATIENT
  Age: 48 Year
  Sex: Female

DRUGS (2)
  1. TREANDA [Suspect]
     Indication: LYMPHOMA
     Route: 042
     Dates: start: 201309, end: 201402
  2. RITUXIMAB [Concomitant]
     Indication: LYMPHOMA
     Dates: start: 201309, end: 201402

REACTIONS (1)
  - Bone marrow failure [Not Recovered/Not Resolved]
